FAERS Safety Report 19689502 (Version 1)
Quarter: 2021Q3

REPORT INFORMATION
  Report Type: Spontaneous
  Country: CN (occurrence: CN)
  Receive Date: 20210811
  Receipt Date: 20210811
  Transmission Date: 20211014
  Serious: Yes (Hospitalization)
  Sender: FDA-Public Use
  Company Number: NVSC2021CN176020

PATIENT
  Age: 30 Year
  Sex: Male
  Weight: 36 kg

DRUGS (1)
  1. VORICONAZOLE. [Suspect]
     Active Substance: VORICONAZOLE
     Indication: PULMONARY TUBERCULOSIS
     Dosage: 200 MG, BID
     Route: 048
     Dates: start: 20210722, end: 20210726

REACTIONS (5)
  - Halo vision [Recovering/Resolving]
  - Restlessness [Recovering/Resolving]
  - Insomnia [Recovering/Resolving]
  - Anxiety [Recovering/Resolving]
  - Hallucination [Recovering/Resolving]

NARRATIVE: CASE EVENT DATE: 20210726
